FAERS Safety Report 16494705 (Version 1)
Quarter: 2019Q2

REPORT INFORMATION
  Report Type: Spontaneous
  Country: GB (occurrence: GB)
  Receive Date: 20190628
  Receipt Date: 20190628
  Transmission Date: 20190711
  Serious: Yes (Other)
  Sender: FDA-Public Use
  Company Number: GB-SUN PHARMACEUTICAL INDUSTRIES LTD-2019RR-211849

PATIENT
  Age: 23 Year
  Sex: Female
  Weight: 60 kg

DRUGS (1)
  1. ISOTRETINOIN. [Suspect]
     Active Substance: ISOTRETINOIN
     Indication: ACNE
     Dosage: 30MG, 45MG, 60MG. ()
     Route: 048
     Dates: start: 20160401, end: 20160701

REACTIONS (6)
  - Arthralgia [Recovered/Resolved with Sequelae]
  - Depression [Recovered/Resolved]
  - Dry eye [Recovered/Resolved with Sequelae]
  - Anxiety [Recovered/Resolved]
  - Suicidal ideation [Recovered/Resolved]
  - Meibomian gland dysfunction [Recovered/Resolved with Sequelae]

NARRATIVE: CASE EVENT DATE: 20160401
